FAERS Safety Report 9156356 (Version 1)
Quarter: 2013Q1

REPORT INFORMATION
  Report Type: Spontaneous
  Country: US (occurrence: None)
  Receive Date: 20130308
  Receipt Date: 20130308
  Transmission Date: 20140127
  Serious: Yes (Hospitalization)
  Sender: FDA-Public Use
  Company Number: None

PATIENT
  Age: 65 Year
  Sex: Male
  Weight: 56 kg

DRUGS (1)
  1. TRAZODONE [Suspect]
     Indication: POST-TRAUMATIC STRESS DISORDER
     Dosage: 200 MG AT BEDTIME PO
     Route: 048
     Dates: start: 20110321, end: 20130302

REACTIONS (3)
  - Confusional state [None]
  - Bradycardia [None]
  - Electrocardiogram QT prolonged [None]
